FAERS Safety Report 5611954-X (Version None)
Quarter: 2008Q1

REPORT INFORMATION
  Report Type: 
  Country: None (occurrence: None)
  Receive Date: 20080130
  Receipt Date: 20080130
  Transmission Date: 20080703
  Serious: Yes (Hospitalization)
  Sender: FDA-Public Use
  Company Number: None

PATIENT
  Age: 60 Year
  Sex: Male

DRUGS (1)
  1. ROSIGLITAZONE [Suspect]
     Indication: DIABETES MELLITUS
     Dosage: 2MG EVERY DAY PO
     Route: 048
     Dates: start: 20071001, end: 20071120

REACTIONS (3)
  - BLOOD PRESSURE DIASTOLIC DECREASED [None]
  - OEDEMA PERIPHERAL [None]
  - WEIGHT INCREASED [None]
